FAERS Safety Report 4780256-6 (Version None)
Quarter: 2005Q3

REPORT INFORMATION
  Report Type: 
  Country: None (occurrence: None)
  Receive Date: 20050914
  Receipt Date: 20040730
  Transmission Date: 20060218
  Serious: Yes (Hospitalization)
  Sender: FDA-Public Use
  Company Number: 163-20785-04080020

PATIENT
  Age: 65 Year
  Sex: Female

DRUGS (6)
  1. THALOMID [Suspect]
     Indication: MULTIPLE MYELOMA
     Dosage: 200 MG, DAILY, ORAL
     Route: 048
     Dates: start: 20031201, end: 20031217
  2. LEVAQUIN [Concomitant]
  3. PROTONIX [Concomitant]
  4. PROCRIT [Concomitant]
  5. VICODIN [Concomitant]
  6. DECADRON [Concomitant]

REACTIONS (1)
  - HYPERCALCAEMIA [None]
